FAERS Safety Report 16451158 (Version 3)
Quarter: 2019Q4

REPORT INFORMATION
  Report Type: Spontaneous
  Country: JP (occurrence: JP)
  Receive Date: 20190619
  Receipt Date: 20191118
  Transmission Date: 20200122
  Serious: Yes (Other)
  Sender: FDA-Public Use
  Company Number: JP-009507513-1906JPN001471J

PATIENT
  Age: 73 Year
  Sex: Male
  Weight: 85 kg

DRUGS (14)
  1. PEMETREXED DISODIUM [Suspect]
     Active Substance: PEMETREXED DISODIUM
     Indication: NON-SMALL CELL LUNG CANCER
     Dosage: 980 MILLIGRAM, EVERY 4 WEEKS
     Route: 041
     Dates: start: 20190517
  2. KEYTRUDA [Suspect]
     Active Substance: PEMBROLIZUMAB
     Indication: NON-SMALL CELL LUNG CANCER
     Dosage: 200 MILLIGRAM, EVERY 4 WEEKS
     Route: 041
     Dates: start: 20190517
  3. PEMETREXED DISODIUM [Suspect]
     Active Substance: PEMETREXED DISODIUM
     Dosage: 784 MILLIGRAM, EVERY 4 WEEKS
     Route: 041
     Dates: start: 20190613, end: 20190815
  4. CARBOPLATIN. [Suspect]
     Active Substance: CARBOPLATIN
     Indication: NON-SMALL CELL LUNG CANCER
     Dosage: 490 MILLIGRAM, EVERY 4 WEEKS
     Route: 041
     Dates: start: 20190517
  5. CARBOPLATIN. [Suspect]
     Active Substance: CARBOPLATIN
     Dosage: 390 MILLIGRAM, EVERY 4 WEEKS
     Route: 041
     Dates: start: 20190613, end: 20190815
  6. FEBURIC [Concomitant]
     Active Substance: FEBUXOSTAT
     Dosage: 20MG, QD(MORNING) AFTER MEAL
     Route: 048
  7. HACHIAZULE (SODIUM BICARBONATE (+) SODIUM GUALENATE) [Concomitant]
     Dosage: 10G,WHEN THE MOUTH IS UNCOMFORTABLE
     Route: 065
     Dates: start: 20190517
  8. SENNOSIDES. [Concomitant]
     Active Substance: SENNOSIDES
     Dosage: 12MG,DURING CONSTIPATION
     Route: 048
     Dates: start: 20190517
  9. DECADRON [Concomitant]
     Active Substance: DEXAMETHASONE
     Dosage: 4MG, QD(MORNING) AFTER MEAL
     Route: 048
     Dates: start: 20190520
  10. PANVITAN [Concomitant]
     Active Substance: VITAMINS
     Dosage: 1 GRAM, QD(MORNING) AFTER MEAL
     Route: 065
     Dates: start: 20190509
  11. BROTIZOLAM [Concomitant]
     Active Substance: BROTIZOLAM
     Dosage: 0.25MG,WHEN YOU CAN^T SLEEP
     Route: 048
     Dates: start: 20190518
  12. NOVORAPID [Concomitant]
     Active Substance: INSULIN ASPART
     Dosage: 1 DOSAGE FORM,UNIT ADJUSTMENT BY BLOOD GLUCOSE LEVEL
     Route: 065
     Dates: start: 20190520
  13. LANSOPRAZOLE. [Concomitant]
     Active Substance: LANSOPRAZOLE
     Dosage: 15 MILLIGRAM, QD(MORNING) AFTER MEAL
     Route: 048
     Dates: start: 20190520
  14. PRIMPERAN [Concomitant]
     Active Substance: METOCLOPRAMIDE HYDROCHLORIDE
     Dosage: 5MG,AS DIRECTED BY THE DOCTOR
     Route: 048
     Dates: start: 20190517

REACTIONS (2)
  - Bone marrow failure [Recovered/Resolved]
  - Off label use [Unknown]

NARRATIVE: CASE EVENT DATE: 20190527
